FAERS Safety Report 15336091 (Version 1)
Quarter: 2018Q3

REPORT INFORMATION
  Report Type: Spontaneous
  Country: PL (occurrence: PL)
  Receive Date: 20180830
  Receipt Date: 20180830
  Transmission Date: 20181010
  Serious: Yes (Hospitalization)
  Sender: FDA-Public Use
  Company Number: PL-BAUSCH-BL-2018-023765

PATIENT
  Age: 10 Year
  Sex: Female

DRUGS (6)
  1. GENTAMICIN. [Suspect]
     Active Substance: GENTAMICIN
     Indication: ACUTE HAEMORRHAGIC OEDEMA OF INFANCY
     Route: 061
     Dates: start: 201512
  2. BETAMETHASONE. [Suspect]
     Active Substance: BETAMETHASONE
     Indication: ACUTE HAEMORRHAGIC OEDEMA OF INFANCY
     Route: 061
     Dates: start: 201512
  3. HYDROCORTISONE. [Suspect]
     Active Substance: HYDROCORTISONE
     Indication: ACUTE HAEMORRHAGIC OEDEMA OF INFANCY
     Route: 061
     Dates: start: 201512
  4. AZITHROMYCIN ANHYDROUS. [Suspect]
     Active Substance: AZITHROMYCIN ANHYDROUS
     Indication: ACUTE HAEMORRHAGIC OEDEMA OF INFANCY
     Route: 048
     Dates: start: 201512
  5. CLOTRIMAZOLE. [Suspect]
     Active Substance: CLOTRIMAZOLE
     Indication: ACUTE HAEMORRHAGIC OEDEMA OF INFANCY
     Route: 061
     Dates: start: 201512
  6. SODIUM CHLORIDE. [Concomitant]
     Active Substance: SODIUM CHLORIDE
     Indication: VIRAL UPPER RESPIRATORY TRACT INFECTION

REACTIONS (1)
  - Drug ineffective [Recovered/Resolved]

NARRATIVE: CASE EVENT DATE: 201512
